FAERS Safety Report 25906771 (Version 1)
Quarter: 2025Q4

REPORT INFORMATION
  Report Type: Spontaneous
  Country: JP (occurrence: JP)
  Receive Date: 20251010
  Receipt Date: 20251010
  Transmission Date: 20260117
  Serious: Yes (Hospitalization)
  Sender: MERCK SHARP & DOHME LLC
  Company Number: JP-009507513-2336710

PATIENT
  Age: 56 Year
  Sex: Female

DRUGS (1)
  1. PEMBROLIZUMAB [Suspect]
     Active Substance: PEMBROLIZUMAB
     Indication: Breast cancer

REACTIONS (7)
  - Immune-mediated hepatic disorder [Unknown]
  - Immune-mediated pericarditis [Recovering/Resolving]
  - Pleurisy [Recovering/Resolving]
  - Interstitial lung disease [Recovering/Resolving]
  - Intensive care unit acquired weakness [Unknown]
  - Pyrexia [Unknown]
  - Guillain-Barre syndrome [Unknown]
